FAERS Safety Report 7638107-8 (Version None)
Quarter: 2011Q3

REPORT INFORMATION
  Report Type: 
  Country: None (occurrence: None)
  Receive Date: 20110720
  Receipt Date: 20110707
  Transmission Date: 20111222
  Serious: Yes (Other)
  Sender: FDA-Public Use
  Company Number: 894632

PATIENT
  Age: 80 Year
  Sex: Male
  Weight: 83.18 kg

DRUGS (1)
  1. HEPARIN SODIUM INJECTION [Suspect]
     Indication: ANTICOAGULANT THERAPY
     Dosage: 8000 UNITS, PRN, INTRAVENOUS (NOT OTHERWISE SPECIFIED)
     Route: 042
     Dates: start: 20110420, end: 20110420

REACTIONS (6)
  - HAEMORRHAGE [None]
  - VOMITING [None]
  - MEDICAL DEVICE COMPLICATION [None]
  - RASH [None]
  - THROMBOSIS [None]
  - NAUSEA [None]
